FAERS Safety Report 17449188 (Version 1)
Quarter: 2020Q1

REPORT INFORMATION
  Report Type: Spontaneous
  Country: GB (occurrence: GB)
  Receive Date: 20200224
  Receipt Date: 20200224
  Transmission Date: 20200409
  Serious: Yes (Other)
  Sender: FDA-Public Use
  Company Number: GB-TEVA-2020-GB-1190740

PATIENT
  Age: 77 Year
  Sex: Male
  Weight: 102 kg

DRUGS (9)
  1. LISINOPRIL. [Suspect]
     Active Substance: LISINOPRIL
     Dosage: 2.5 MILLIGRAM
     Route: 065
     Dates: start: 20200131
  2. RIVAROXABAN [Concomitant]
     Active Substance: RIVAROXABAN
     Dosage: WITH FOOD EACH MORNING
     Dates: start: 20190704
  3. ALFACALCIDOL [Concomitant]
     Active Substance: ALFACALCIDOL
     Dosage: MORNING
     Dates: start: 20190704
  4. LANSOPRAZOLE. [Concomitant]
     Active Substance: LANSOPRAZOLE
     Dosage: MORNING
     Dates: start: 20190704
  5. HUMULIN M3 [Concomitant]
     Active Substance: INSULIN HUMAN
     Dosage: USE AS DIRECTED
     Dates: start: 20190704
  6. FENOFIBRATE. [Concomitant]
     Active Substance: FENOFIBRATE
     Dosage: ONE IN THE MORNING AND ONE IN THE EVENING
     Dates: start: 20190704
  7. LEVETIRACETAM. [Concomitant]
     Active Substance: LEVETIRACETAM
     Dosage: ONE MORNING AND ONE NIGHT
     Dates: start: 20190704
  8. ROSUVASTATIN. [Concomitant]
     Active Substance: ROSUVASTATIN
     Dosage: EACH MORNING
     Dates: start: 20190704
  9. CLOPIDOGREL [Concomitant]
     Active Substance: CLOPIDOGREL BISULFATE
     Dosage: MORNING
     Dates: start: 20190704, end: 20190723

REACTIONS (1)
  - Renal artery stenosis [Unknown]
